FAERS Safety Report 10381220 (Version 1)
Quarter: 2014Q1

REPORT INFORMATION
  Report Type: Spontaneous
  Country: US (occurrence: None)
  Receive Date: 20140306
  Receipt Date: 20140306
  Transmission Date: 20141002
  Serious: Yes (Other)
  Sender: FDA-Public Use
  Company Number: 163-21880-13031071

PATIENT
  Age: 72 Year
  Sex: Female
  Weight: 72.58 kg

DRUGS (3)
  1. REVLIMID [Suspect]
     Indication: PLASMA CELL MYELOMA
     Route: 048
     Dates: start: 201008, end: 2010
  2. DEX (DEXAMETHASONE) [Concomitant]
  3. VELCADE (BORTEZOMIB) [Concomitant]

REACTIONS (5)
  - Thrombosis [None]
  - Feeling abnormal [None]
  - Abdominal distension [None]
  - Musculoskeletal chest pain [None]
  - Protein total increased [None]
